FAERS Safety Report 25700437 (Version 1)
Quarter: 2025Q3

REPORT INFORMATION
  Report Type: Spontaneous
  Country: EU (occurrence: EU)
  Receive Date: 20250819
  Receipt Date: 20250819
  Transmission Date: 20251021
  Serious: Yes (Hospitalization)
  Sender: FRESENIUS KABI
  Company Number: None

PATIENT
  Age: 33 Year
  Sex: Female

DRUGS (1)
  1. ROPIVACAINE HYDROCHLORIDE ANHYDROUS [Suspect]
     Active Substance: ROPIVACAINE HYDROCHLORIDE ANHYDROUS
     Indication: Anaesthesia
     Route: 008
     Dates: start: 20250519, end: 20250519

REACTIONS (1)
  - Motor dysfunction [Recovered/Resolved]

NARRATIVE: CASE EVENT DATE: 20250520
